FAERS Safety Report 6691689-5 (Version None)
Quarter: 2010Q2

REPORT INFORMATION
  Report Type: 
  Country: None (occurrence: None)
  Receive Date: 20100422
  Receipt Date: 20090728
  Transmission Date: 20101027
  Serious: No
  Sender: FDA-Public Use
  Company Number: US-ASTRAZENECA-2009UW21384

PATIENT
  Age: 85 Year
  Sex: Female
  Weight: 71.7 kg

DRUGS (2)
  1. TOPROL-XL [Suspect]
     Route: 048
     Dates: start: 20080101
  2. ASPIRIN [Concomitant]

REACTIONS (3)
  - FATIGUE [None]
  - HEART RATE ABNORMAL [None]
  - THINKING ABNORMAL [None]
